FAERS Safety Report 7574677-6 (Version None)
Quarter: 2011Q2

REPORT INFORMATION
  Report Type: 
  Country: None (occurrence: None)
  Receive Date: 20110627
  Receipt Date: 20110622
  Transmission Date: 20111010
  Serious: Yes (Hospitalization)
  Sender: FDA-Public Use
  Company Number: CA-ABBOTT-09P-028-0614880-00

PATIENT
  Sex: Female
  Weight: 58.112 kg

DRUGS (1)
  1. HUMIRA [Suspect]
     Indication: CROHN'S DISEASE
     Route: 058
     Dates: start: 20091008, end: 20091201

REACTIONS (9)
  - OEDEMA PERIPHERAL [None]
  - ASTHENIA [None]
  - NAUSEA [None]
  - DIZZINESS [None]
  - DECREASED APPETITE [None]
  - ACTIVITIES OF DAILY LIVING IMPAIRED [None]
  - DYSPNOEA [None]
  - MALAISE [None]
  - FEELING ABNORMAL [None]
